FAERS Safety Report 7346254-3 (Version None)
Quarter: 2011Q1

REPORT INFORMATION
  Report Type: 
  Country: None (occurrence: None)
  Receive Date: 20110228
  Receipt Date: 20110201
  Transmission Date: 20110831
  Serious: Yes (Hospitalization)
  Sender: FDA-Public Use
  Company Number: BE-022024

PATIENT
  Age: 78 Year
  Sex: Male

DRUGS (2)
  1. (CHLORAMBUCIL) [Suspect]
     Indication: CHRONIC LYMPHOCYTIC LEUKAEMIA
     Dosage: 10MGM2 DAYS 1-7 EVERY 28 DAYS; ORAL
     Route: 048
     Dates: start: 20100310
  2. OFATUMUMAB [Suspect]
     Indication: CHRONIC LYMPHOCYTIC LEUKAEMIA
     Dosage: 300 MG DAY 1, 1000MG DAY 8 FOLLOWED BY 1000 EVERY 28 DAYS, INTRAVENOUS (NOT OTHERWISE SPECIFIED)
     Route: 042
     Dates: end: 20100310

REACTIONS (3)
  - CHILLS [None]
  - ENDOCARDITIS [None]
  - SEPSIS [None]
